FAERS Safety Report 18766952 (Version 1)
Quarter: 2021Q1

REPORT INFORMATION
  Report Type: Spontaneous
  Country: JP (occurrence: JP)
  Receive Date: 20210121
  Receipt Date: 20210121
  Transmission Date: 20210419
  Serious: Yes (Hospitalization)
  Sender: FDA-Public Use
  Company Number: JP-ROCHE-2754132

PATIENT
  Age: 61 Year

DRUGS (1)
  1. ACTEMRA [Suspect]
     Active Substance: TOCILIZUMAB
     Indication: COVID-19
     Route: 041
     Dates: start: 202012, end: 202012

REACTIONS (4)
  - Pancreatitis acute [Recovering/Resolving]
  - Intentional product use issue [Unknown]
  - Liver disorder [Unknown]
  - Off label use [Unknown]
